FAERS Safety Report 19306232 (Version 2)
Quarter: 2021Q2

REPORT INFORMATION
  Report Type: Spontaneous
  Country: US (occurrence: US)
  Receive Date: 20210526
  Receipt Date: 20210602
  Transmission Date: 20210717
  Serious: Yes (Hospitalization, Other)
  Sender: FDA-Public Use
  Company Number: US-PFIZER INC-2021547740

PATIENT
  Age: 6 Year
  Sex: Male

DRUGS (7)
  1. IFOSFAMIDE. [Suspect]
     Active Substance: IFOSFAMIDE
     Indication: RENAL CANCER
     Dosage: UNK, 4 CYCLES
  2. MANNITOL. [Concomitant]
     Active Substance: MANNITOL
     Indication: PROPHYLAXIS
     Dosage: UNK
  3. ETOPOSIDE. [Suspect]
     Active Substance: ETOPOSIDE
     Indication: RENAL CANCER
     Dosage: UNK, 4 CYCLES
  4. IFOSFAMIDE. [Suspect]
     Active Substance: IFOSFAMIDE
     Dosage: UNK, 3 CYCLES
  5. ETOPOSIDE. [Suspect]
     Active Substance: ETOPOSIDE
     Dosage: UNK, 3 CYCLES
  6. CISPLATIN. [Suspect]
     Active Substance: CISPLATIN
     Indication: RENAL CANCER
     Dosage: UNK, 4 CYCLES
  7. VINCRISTINE SULFATE. [Suspect]
     Active Substance: VINCRISTINE SULFATE
     Indication: RENAL CANCER
     Dosage: UNK, 3 CYCLES

REACTIONS (4)
  - Febrile neutropenia [Recovering/Resolving]
  - Acute kidney injury [Recovering/Resolving]
  - Off label use [Recovering/Resolving]
  - Chronic kidney disease [Unknown]
